FAERS Safety Report 17631966 (Version 1)
Quarter: 2020Q2

REPORT INFORMATION
  Report Type: Spontaneous
  Country: US (occurrence: US)
  Receive Date: 20200406
  Receipt Date: 20200406
  Transmission Date: 20200713
  Serious: No
  Sender: FDA-Public Use
  Company Number: US-ASTRAZENECA-2020SE44908

PATIENT
  Sex: Female

DRUGS (2)
  1. FAMOTIDINE. [Concomitant]
     Active Substance: FAMOTIDINE
  2. SYNAGIS [Suspect]
     Active Substance: PALIVIZUMAB
     Indication: RESPIRATORY SYNCYTIAL VIRUS INFECTION
     Route: 030
     Dates: start: 20200228

REACTIONS (3)
  - Vomiting [Unknown]
  - Fatigue [Unknown]
  - Tremor [Unknown]
